FAERS Safety Report 24848542 (Version 1)
Quarter: 2025Q1

REPORT INFORMATION
  Report Type: Other
  Country: CN (occurrence: CN)
  Receive Date: 20250116
  Receipt Date: 20250116
  Transmission Date: 20250409
  Serious: Yes (Hospitalization)
  Sender: PARATEK PHARMACEUTICALS
  Company Number: CN-PARATEK PHARMACEUTICALS, INC.-2025PTK00042

PATIENT
  Age: 79 Year
  Sex: Male
  Weight: 61 kg

DRUGS (3)
  1. NUZYRA [Suspect]
     Active Substance: OMADACYCLINE
     Indication: Febrile infection
     Dosage: 0.2 G, 1X/DAY
     Route: 041
     Dates: start: 20241216, end: 20241216
  2. NUZYRA [Suspect]
     Active Substance: OMADACYCLINE
     Dosage: 0.1 G, 1X/DAY
     Route: 041
     Dates: start: 20241217, end: 20241217
  3. NUZYRA [Suspect]
     Active Substance: OMADACYCLINE
     Dosage: 0.1 G, 1X/DAY
     Route: 041
     Dates: start: 20241218, end: 20241220

REACTIONS (1)
  - Pyrexia [Recovered/Resolved]

NARRATIVE: CASE EVENT DATE: 20241219
